FAERS Safety Report 24616276 (Version 1)
Quarter: 2024Q4

REPORT INFORMATION
  Report Type: Spontaneous
  Country: IN (occurrence: IN)
  Receive Date: 20241114
  Receipt Date: 20241114
  Transmission Date: 20250115
  Serious: Yes (Death, Life-Threatening, Hospitalization, Other)
  Sender: CIPLA
  Company Number: IN-MLMSERVICE-20241025-PI234551-00120-1

PATIENT

DRUGS (2)
  1. DICLOFENAC [Suspect]
     Active Substance: DICLOFENAC
     Indication: Pain
     Dosage: 1 DOSAGE FORM, 1 INJECTION GIVEN TO BUTTOCK
     Route: 030
     Dates: start: 20230205, end: 20230205
  2. VITAMIN B12 [Suspect]
     Active Substance: CYANOCOBALAMIN
     Indication: Pain
     Dosage: 1 DOSAGE FORM, 1 INJECTION GIVEN TO BUTTOCK
     Route: 030
     Dates: start: 20230205, end: 20230205

REACTIONS (5)
  - Gas gangrene [Fatal]
  - Renal tubular necrosis [Fatal]
  - Klebsiella sepsis [Fatal]
  - Enterobacter sepsis [Fatal]
  - Acute kidney injury [Fatal]

NARRATIVE: CASE EVENT DATE: 20230201
